FAERS Safety Report 5775243-5 (Version None)
Quarter: 2008Q2

REPORT INFORMATION
  Report Type: 
  Country: None (occurrence: None)
  Receive Date: 20080616
  Receipt Date: 20080616
  Transmission Date: 20081010
  Serious: Yes (Life-Threatening)
  Sender: FDA-Public Use
  Company Number: None

PATIENT
  Age: 60 Year
  Sex: Male
  Weight: 90.8 kg

DRUGS (2)
  1. LISINOPRIL [Suspect]
     Indication: HYPERTENSION
     Dosage: 20 MG EVERY DAY PO
     Route: 048
     Dates: start: 20070907, end: 20071217
  2. LISINOPRIL [Suspect]
     Indication: RENAL FAILURE CHRONIC
     Dosage: 20 MG EVERY DAY PO
     Route: 048
     Dates: start: 20070907, end: 20071217

REACTIONS (4)
  - ANGIOEDEMA [None]
  - SENSATION OF FOREIGN BODY [None]
  - SPEECH DISORDER [None]
  - THROAT TIGHTNESS [None]
